FAERS Safety Report 19441114 (Version 1)
Quarter: 2021Q2

REPORT INFORMATION
  Report Type: Spontaneous
  Country: FR (occurrence: FR)
  Receive Date: 20210621
  Receipt Date: 20210621
  Transmission Date: 20210717
  Serious: Yes (Other)
  Sender: FDA-Public Use
  Company Number: FR-TEVA-2021-FR-1923317

PATIENT
  Age: 47 Year
  Sex: Female

DRUGS (7)
  1. FUROSEMIDE. [Concomitant]
     Active Substance: FUROSEMIDE
  2. TERCIAN [Concomitant]
     Active Substance: CYAMEMAZINE
  3. CLOZAPINE. [Suspect]
     Active Substance: CLOZAPINE
     Indication: SCHIZOPHRENIA
     Dosage: LONG?TERM TREATMENT
  4. NOCTAMIDE [Concomitant]
     Active Substance: LORMETAZEPAM
  5. VENLAFAXINE [Concomitant]
     Active Substance: VENLAFAXINE HYDROCHLORIDE
  6. LORAZEPAM. [Concomitant]
     Active Substance: LORAZEPAM
  7. UVEDOSE [Concomitant]
     Active Substance: CHOLECALCIFEROL

REACTIONS (1)
  - Morbihan disease [Not Recovered/Not Resolved]

NARRATIVE: CASE EVENT DATE: 20200717
